FAERS Safety Report 15724883 (Version 1)
Quarter: 2018Q4

REPORT INFORMATION
  Report Type: Spontaneous
  Country: US (occurrence: US)
  Receive Date: 20181214
  Receipt Date: 20181214
  Transmission Date: 20190205
  Serious: Yes (Hospitalization)
  Sender: FDA-Public Use
  Company Number: US-DSJP-DSU-2018-151215

PATIENT

DRUGS (4)
  1. WELCHOL [Suspect]
     Active Substance: COLESEVELAM HYDROCHLORIDE
     Indication: HYPERLIPIDAEMIA
     Dosage: 1875 MG, BID
     Route: 048
  2. FLOMAX [Concomitant]
     Active Substance: TAMSULOSIN HYDROCHLORIDE
     Indication: PRODUCT USED FOR UNKNOWN INDICATION
  3. LISINOPRIL. [Concomitant]
     Active Substance: LISINOPRIL
     Indication: HYPERTENSION
     Dosage: 10 MG
     Route: 048
  4. COREG [Concomitant]
     Active Substance: CARVEDILOL
     Indication: HYPERTENSION
     Dosage: 3.125 MG
     Route: 048

REACTIONS (7)
  - Asthenia [Recovering/Resolving]
  - Headache [Recovered/Resolved]
  - Cerebral haemorrhage [Unknown]
  - Respiratory arrest [Recovered/Resolved]
  - Ischaemic stroke [Unknown]
  - Vomiting [Recovered/Resolved]
  - Brain injury [Unknown]

NARRATIVE: CASE EVENT DATE: 2016
